FAERS Safety Report 14116633 (Version 1)
Quarter: 2017Q4

REPORT INFORMATION
  Report Type: Spontaneous
  Country: MX (occurrence: MX)
  Receive Date: 20171023
  Receipt Date: 20171023
  Transmission Date: 20180321
  Serious: Yes (Hospitalization)
  Sender: FDA-Public Use
  Company Number: MX-TEVA-816485ISR

PATIENT
  Age: 77 Year
  Sex: Female

DRUGS (1)
  1. AZILECT [Suspect]
     Active Substance: RASAGILINE MESYLATE
     Indication: PARKINSON^S DISEASE
     Dosage: 1 MILLIGRAM DAILY;
     Route: 048
     Dates: start: 20140124

REACTIONS (3)
  - Intestinal obstruction [Recovering/Resolving]
  - Pyrexia [Recovering/Resolving]
  - Colostomy [Unknown]

NARRATIVE: CASE EVENT DATE: 201612
